FAERS Safety Report 15055172 (Version 1)
Quarter: 2018Q2

REPORT INFORMATION
  Report Type: Spontaneous
  Country: IT (occurrence: IT)
  Receive Date: 20180622
  Receipt Date: 20180622
  Transmission Date: 20180711
  Serious: Yes (Hospitalization)
  Sender: FDA-Public Use
  Company Number: IT-ALLERGAN-1831831US

PATIENT
  Age: 55 Year
  Sex: Female

DRUGS (2)
  1. EN [Suspect]
     Active Substance: DELORAZEPAM
     Indication: PRODUCT USED FOR UNKNOWN INDICATION
     Dosage: 20 ML, UNK (IN TOTAL)
     Route: 048
     Dates: start: 20180521, end: 20180521
  2. ESCITALOPRAM OXALATE - BP [Suspect]
     Active Substance: ESCITALOPRAM OXALATE
     Indication: PRODUCT USED FOR UNKNOWN INDICATION
     Dosage: 14 DF, (IN TOTAL)
     Route: 048
     Dates: start: 20180521, end: 20180521

REACTIONS (4)
  - Drug abuse [Recovering/Resolving]
  - Sopor [Recovering/Resolving]
  - Intentional overdose [Unknown]
  - Suicide attempt [Recovering/Resolving]

NARRATIVE: CASE EVENT DATE: 20180521
